FAERS Safety Report 8094580-5 (Version None)
Quarter: 2012Q1

REPORT INFORMATION
  Report Type: 
  Country: None (occurrence: None)
  Receive Date: 20120131
  Receipt Date: 20120123
  Transmission Date: 20120608
  Serious: No
  Sender: FDA-Public Use
  Company Number: US-PFIZER INC-2012019615

PATIENT

DRUGS (4)
  1. AMBIEN [Suspect]
     Indication: INSOMNIA
  2. ZOLOFT [Suspect]
     Indication: DEPRESSION
     Dosage: UNK
  3. ZOLOFT [Suspect]
     Indication: INSOMNIA
  4. AMBIEN [Suspect]
     Indication: DEPRESSION
     Dosage: UNK

REACTIONS (1)
  - SLEEP TERROR [None]
